FAERS Safety Report 16024712 (Version 3)
Quarter: 2019Q1

REPORT INFORMATION
  Report Type: Spontaneous
  Country: JP (occurrence: JP)
  Receive Date: 20190301
  Receipt Date: 20190328
  Transmission Date: 20190418
  Serious: Yes (Death, Hospitalization, Other)
  Sender: FDA-Public Use
  Company Number: JP-DSJP-DSJ-2019-106714AA

PATIENT

DRUGS (7)
  1. DORIPENEM. [Concomitant]
     Active Substance: DORIPENEM
     Dosage: 0.5G/DAY
     Route: 065
  2. LIXIANA TABLETS [Suspect]
     Active Substance: EDOXABAN TOSYLATE
     Dosage: 30MG/DAY
     Route: 048
  3. ANTIBIOTICS [Suspect]
     Active Substance: UNSPECIFIED INGREDIENT
     Dosage: UNK
     Route: 065
  4. HEPARIN [Concomitant]
     Active Substance: HEPARIN SODIUM
     Dosage: 5000UNITS/DAY
     Route: 042
  5. LIXIANA TABLETS [Suspect]
     Active Substance: EDOXABAN TOSYLATE
     Dosage: 30MG/DAY
     Route: 048
  6. LIXIANA TABLETS [Suspect]
     Active Substance: EDOXABAN TOSYLATE
     Indication: ATRIAL FIBRILLATION
     Dosage: 30MG/DAY
     Route: 048
  7. CEFMETAZON [Suspect]
     Active Substance: CEFMETAZOLE SODIUM
     Indication: GASTROINTESTINAL INFECTION
     Dosage: 2G/DAY
     Route: 065

REACTIONS (3)
  - Cardiac failure [Fatal]
  - Coagulopathy [Recovering/Resolving]
  - Colitis ischaemic [Recovering/Resolving]
